FAERS Safety Report 7639261-4 (Version None)
Quarter: 2011Q3

REPORT INFORMATION
  Report Type: 
  Country: None (occurrence: None)
  Receive Date: 20110727
  Receipt Date: 20110720
  Transmission Date: 20111222
  Serious: Yes (Hospitalization, Other)
  Sender: FDA-Public Use
  Company Number: US-MERCK-1103USA00640

PATIENT
  Age: 72 Year
  Sex: Female
  Weight: 83 kg

DRUGS (10)
  1. FOSAMAX [Suspect]
     Indication: OSTEOPOROSIS
     Route: 048
     Dates: start: 20050401, end: 20101001
  2. ALENDRONATE SODIUM [Suspect]
     Route: 048
     Dates: start: 20080312, end: 20100929
  3. LISINOPRIL [Concomitant]
     Route: 065
  4. FLONASE [Concomitant]
     Route: 065
  5. FOSAMAX [Suspect]
     Route: 048
     Dates: start: 20080312, end: 20100929
  6. CALCIUM CARBONATE [Concomitant]
     Route: 065
     Dates: start: 19990101
  7. ASPIRIN [Concomitant]
     Route: 048
  8. CALCIUM (UNSPECIFIED) [Concomitant]
     Route: 048
  9. DYAZIDE [Concomitant]
     Route: 065
  10. CLONIDINE [Concomitant]
     Route: 048

REACTIONS (10)
  - VITAMIN D DEFICIENCY [None]
  - FEMUR FRACTURE [None]
  - CALCIUM DEFICIENCY [None]
  - FALL [None]
  - HIP FRACTURE [None]
  - BONE DENSITY DECREASED [None]
  - OSTEOPENIA [None]
  - PAIN IN EXTREMITY [None]
  - CONTUSION [None]
  - HYPERTENSION [None]
